APPROVED DRUG PRODUCT: THIOTHIXENE HYDROCHLORIDE
Active Ingredient: THIOTHIXENE HYDROCHLORIDE
Strength: EQ 5MG BASE/ML
Dosage Form/Route: CONCENTRATE;ORAL
Application: A071939 | Product #001
Applicant: PACO RESEARCH CORP
Approved: Dec 16, 1988 | RLD: No | RS: No | Type: DISCN